FAERS Safety Report 7150676-3 (Version None)
Quarter: 2010Q4

REPORT INFORMATION
  Report Type: 
  Country: None (occurrence: None)
  Receive Date: 20101207
  Receipt Date: 20101207
  Transmission Date: 20110411
  Serious: Yes (Hospitalization)
  Sender: FDA-Public Use
  Company Number: None

PATIENT
  Sex: Female
  Weight: 73.7 kg

DRUGS (11)
  1. NEULASTA [Suspect]
     Indication: HYPERSENSITIVITY
     Dates: start: 20101114
  2. NEULASTA [Suspect]
     Indication: NEUTROPENIA
     Dates: start: 20101114
  3. NEULASTA [Suspect]
     Indication: ORAL CANDIDIASIS
     Dates: start: 20101114
  4. ABRAXANE [Suspect]
     Dosage: 174 MG
     Dates: start: 20100510, end: 20100809
  5. AVASTIN [Suspect]
     Dates: start: 20100524, end: 20100712
  6. CARBOPLATIN [Suspect]
     Dates: start: 20100524, end: 20100802
  7. ADRIAMYCIN PFS [Suspect]
     Dates: start: 20101108, end: 20101108
  8. CYCLOPHOSPHAMIDE [Suspect]
     Dates: start: 20101108, end: 20101108
  9. MAGIC MOUTHWASH [Concomitant]
     Indication: ODYNOPHAGIA
     Dosage: 40 ML PO
     Route: 048
     Dates: start: 20101114, end: 20101116
  10. PREDNISONE [Concomitant]
     Indication: HYPERSENSITIVITY
     Dosage: 40 MG PO
     Route: 048
     Dates: start: 20101114, end: 20101114
  11. FLUCONAZOLE [Concomitant]
     Indication: ORAL CANDIDIASIS
     Dosage: 200 MG PO
     Route: 048
     Dates: start: 20101115, end: 20101115

REACTIONS (4)
  - DRUG HYPERSENSITIVITY [None]
  - NEUTROPENIA [None]
  - ODYNOPHAGIA [None]
  - OROPHARYNGEAL PAIN [None]
